FAERS Safety Report 4934919-X (Version None)
Quarter: 2006Q1

REPORT INFORMATION
  Report Type: 
  Country: None (occurrence: None)
  Receive Date: 20060306
  Receipt Date: 20060306
  Transmission Date: 20060701
  Serious: Yes (Hospitalization)
  Sender: FDA-Public Use
  Company Number: None

PATIENT
  Age: 60 Year
  Sex: Male
  Weight: 105.2345 kg

DRUGS (1)
  1. GLEEVEC [Suspect]
     Indication: GASTROINTESTINAL STROMAL TUMOUR
     Dosage: 400MG QD PO
     Route: 048
     Dates: start: 20050301, end: 20050413

REACTIONS (4)
  - CHOLESTASIS [None]
  - JAUNDICE [None]
  - NAUSEA [None]
  - PRURITUS [None]
